FAERS Safety Report 5836109-5 (Version None)
Quarter: 2008Q3

REPORT INFORMATION
  Report Type: 
  Country: None (occurrence: None)
  Receive Date: 20080806
  Receipt Date: 20080731
  Transmission Date: 20090109
  Serious: Yes (Death)
  Sender: FDA-Public Use
  Company Number: FR-GENENTECH-265272

PATIENT
  Age: 8 Month
  Sex: Male

DRUGS (1)
  1. NUTROPIN [Suspect]
     Indication: PRADER-WILLI SYNDROME
     Dosage: UNK

REACTIONS (1)
  - RESPIRATORY TRACT INFECTION [None]
